FAERS Safety Report 18028554 (Version 5)
Quarter: 2020Q3

REPORT INFORMATION
  Report Type: Report from Study
  Country: RU (occurrence: RU)
  Receive Date: 20200716
  Receipt Date: 20200928
  Transmission Date: 20201103
  Serious: Yes (Hospitalization)
  Sender: FDA-Public Use
  Company Number: RU-ROCHE-2638532

PATIENT
  Age: 42 Year
  Sex: Male
  Weight: 72.5 kg

DRUGS (43)
  1. OCRELIZUMAB. [Suspect]
     Active Substance: OCRELIZUMAB
     Dosage: OLE WEEK 24
     Route: 042
     Dates: start: 20150603, end: 20150603
  2. OCRELIZUMAB. [Suspect]
     Active Substance: OCRELIZUMAB
     Dosage: OLE WEEK 72
     Route: 042
     Dates: start: 20160505, end: 20160505
  3. OCRELIZUMAB. [Suspect]
     Active Substance: OCRELIZUMAB
     Dosage: OLE WEEK 192
     Route: 042
     Dates: start: 20180821, end: 20180821
  4. OMEPRAZOLE. [Concomitant]
     Active Substance: OMEPRAZOLE
     Dates: start: 202006, end: 202006
  5. FLUCONAZOLE. [Concomitant]
     Active Substance: FLUCONAZOLE
     Dates: start: 202004, end: 202006
  6. SOLCOSERYL [Concomitant]
     Active Substance: SOLCOSERYL
     Dates: start: 20200717
  7. OCRELIZUMAB. [Suspect]
     Active Substance: OCRELIZUMAB
     Dosage: OLE WEEK 96
     Route: 042
     Dates: start: 20161018, end: 20161018
  8. NEOSTIGMINE METHYLSULPHATE [Concomitant]
     Active Substance: NEOSTIGMINE METHYLSULFATE
     Dates: start: 202006, end: 202006
  9. ASCORBIC ACID. [Concomitant]
     Active Substance: ASCORBIC ACID
     Dates: start: 202004, end: 202006
  10. TOLPERISONUM [Concomitant]
     Indication: MUSCLE SPASTICITY
     Dates: start: 20170405
  11. INTERFERON BETA?1A [Suspect]
     Active Substance: INTERFERON BETA-1A
     Indication: RELAPSING-REMITTING MULTIPLE SCLEROSIS
     Route: 058
     Dates: start: 20130116, end: 20141212
  12. OCRELIZUMAB. [Suspect]
     Active Substance: OCRELIZUMAB
     Dosage: OLE WEEK 48
     Route: 042
     Dates: start: 20151117, end: 20151117
  13. OCRELIZUMAB. [Suspect]
     Active Substance: OCRELIZUMAB
     Dosage: OLE WEEK 120
     Route: 042
     Dates: start: 20170407, end: 20170407
  14. OMEPRAZOLE. [Concomitant]
     Active Substance: OMEPRAZOLE
     Dates: start: 202004, end: 202006
  15. AZITHROMYCINE [Concomitant]
     Active Substance: AZITHROMYCIN
     Dates: start: 202004, end: 202006
  16. ENOXAPARIN SODIUM. [Concomitant]
     Active Substance: ENOXAPARIN SODIUM
     Dates: start: 202004, end: 202006
  17. LEVOFLOXACINE [Concomitant]
     Active Substance: LEVOFLOXACIN
     Dates: start: 202004, end: 202006
  18. POTASSIUM CHLORIDE. [Concomitant]
     Active Substance: POTASSIUM CHLORIDE
     Indication: COVID-19 PNEUMONIA
     Dates: start: 202004, end: 202006
  19. NITROFURAL [Concomitant]
     Dates: start: 20200717
  20. OCRELIZUMAB. [Suspect]
     Active Substance: OCRELIZUMAB
     Dosage: OLE WEEK 240
     Route: 042
     Dates: start: 20190722, end: 20190722
  21. CEFEPIMUM [Concomitant]
     Active Substance: CEFEPIME HYDROCHLORIDE
     Dates: start: 202004, end: 202006
  22. IBUPROFEN. [Concomitant]
     Active Substance: IBUPROFEN
     Indication: UPPER RESPIRATORY TRACT INFECTION
     Dates: start: 20200403
  23. PARACETAMOL [Concomitant]
     Active Substance: ACETAMINOPHEN
     Indication: PREMEDICATION
     Dosage: SUBSEQUENT DOSES: 30/JAN/2013, 03/JUL/2013, 18/DEC/2013, 03/JUN/2014, 16/DEC/2014, 29/DEC/2014, 03/J
     Dates: start: 20130116
  24. LINEX FORTE [Concomitant]
     Active Substance: PROBIOTICS NOS
     Dosage: 1 CAPSULE
     Dates: start: 20200720
  25. PLACEBO [Suspect]
     Active Substance: UNSPECIFIED INGREDIENT
     Indication: RELAPSING-REMITTING MULTIPLE SCLEROSIS
     Dosage: FURTHER INFUSION: 30/JAN/2013 (WEEK 2; LOT NUMBER: 407503), 03/JUL/2013 (WEEK 24; LOT NUMBER: 408929
     Route: 042
     Dates: start: 20130116
  26. OCRELIZUMAB. [Suspect]
     Active Substance: OCRELIZUMAB
     Dosage: OLE WEEK 144
     Route: 042
     Dates: start: 20170920, end: 20170920
  27. BIFIFORM [BIFIDOBACTERIUM BIFIDUM] [Concomitant]
     Dates: start: 202004, end: 202006
  28. ENTEROL (RUSSIA) [Concomitant]
     Dates: start: 202004, end: 202006
  29. KALETRA [Concomitant]
     Active Substance: LOPINAVIR\RITONAVIR
     Dates: start: 202004, end: 202006
  30. VANCOMYCIN [Concomitant]
     Active Substance: VANCOMYCIN
     Dates: start: 202004, end: 202006
  31. CIPROFLOXACINE [Concomitant]
     Active Substance: CIPROFLOXACIN
     Indication: COVID-19 PNEUMONIA
     Dates: start: 202006, end: 202006
  32. MAGNESIUM SULFATE. [Concomitant]
     Active Substance: MAGNESIUM SULFATE
     Indication: COVID-19 PNEUMONIA
     Dates: start: 202004, end: 202006
  33. CETIRIZINE [Concomitant]
     Active Substance: CETIRIZINE HYDROCHLORIDE
     Indication: PREMEDICATION
     Dosage: SUBSEQUENT DOSES: 30/JAN/2013, 03/JUL/2013, 18/DEC/2013, 03/JUN/2014, 16/DEC/2014, 29/DEC/2014, 03/J
     Dates: start: 20130616
  34. METHYLPREDNISOLONE. [Concomitant]
     Active Substance: METHYLPREDNISOLONE
     Indication: PREMEDICATION
     Dosage: SUBSEQUENT DOSES: 30/JAN/2013, 03/JUL/2013, 18/DEC/2013, 03/JUN/2014, 16/DEC/2014, 29/DEC/2014, 03/J
     Dates: start: 20130116
  35. DIOXOMETHYLTETRAHYDROPYRIMIDINE [Concomitant]
     Dates: start: 20200717
  36. OCRELIZUMAB. [Suspect]
     Active Substance: OCRELIZUMAB
     Dosage: OLE WEEK 168
     Route: 042
     Dates: start: 20180306, end: 20180306
  37. OCRELIZUMAB. [Suspect]
     Active Substance: OCRELIZUMAB
     Dosage: OLE WEEK 264
     Route: 042
     Dates: start: 20200109, end: 20200109
  38. PANCREATIN [Concomitant]
     Active Substance: PANCRELIPASE
     Dates: start: 202006, end: 202006
  39. OCRELIZUMAB. [Suspect]
     Active Substance: OCRELIZUMAB
     Indication: RELAPSING-REMITTING MULTIPLE SCLEROSIS
     Dosage: 16/DEC/2014 (OLE WEEK 0), 29/DEC/2014 (OLE WEEK 2)?300 MG INFUSIONS ON DAY 1 AND 15 FOR THE FIRST DO
     Route: 042
     Dates: start: 20141216
  40. OCRELIZUMAB. [Suspect]
     Active Substance: OCRELIZUMAB
     Dosage: OLE WEEK 216
     Route: 042
     Dates: start: 20190205, end: 20190205
  41. ERTAPENEM. [Concomitant]
     Active Substance: ERTAPENEM SODIUM
     Dates: start: 202004, end: 202006
  42. ACETYLCYSTEINE. [Concomitant]
     Active Substance: ACETYLCYSTEINE
     Indication: UPPER RESPIRATORY TRACT INFECTION
     Dates: start: 20200328
  43. AMOKSIKLAV [Concomitant]
     Active Substance: AMOXICILLIN\CLAVULANATE POTASSIUM
     Indication: UPPER RESPIRATORY TRACT INFECTION
     Dosage: 1 TABLET
     Dates: start: 20200403

REACTIONS (1)
  - Furuncle [Recovered/Resolved with Sequelae]

NARRATIVE: CASE EVENT DATE: 20200627
